FAERS Safety Report 7035674-2 (Version None)
Quarter: 2010Q4

REPORT INFORMATION
  Report Type: 
  Country: None (occurrence: None)
  Receive Date: 20101008
  Receipt Date: 20101005
  Transmission Date: 20110411
  Serious: Yes (Other)
  Sender: FDA-Public Use
  Company Number: US-MERCK-1010USA00673

PATIENT
  Sex: Female

DRUGS (2)
  1. FOSAMAX [Suspect]
     Route: 048
     Dates: start: 19990101, end: 20091001
  2. ALENDRONATE SODIUM [Suspect]
     Route: 048
     Dates: start: 19990101, end: 20091001

REACTIONS (1)
  - FEMUR FRACTURE [None]
